FAERS Safety Report 19140673 (Version 3)
Quarter: 2021Q2

REPORT INFORMATION
  Report Type: Spontaneous
  Country: US (occurrence: US)
  Receive Date: 20210415
  Receipt Date: 20210506
  Transmission Date: 20210717
  Serious: Yes (Hospitalization, Other)
  Sender: FDA-Public Use
  Company Number: US-BRISTOL-MYERS SQUIBB COMPANY-BMS-2021-035556

PATIENT
  Age: 56 Year
  Sex: Male
  Weight: 112.1 kg

DRUGS (27)
  1. MOTRIN [Concomitant]
     Active Substance: IBUPROFEN
     Indication: BACK PAIN
     Dosage: UNK, PRN
     Route: 048
     Dates: start: 20210310, end: 20210317
  2. GAS?X [Concomitant]
     Active Substance: DIMETHICONE
     Indication: FLATULENCE
     Dosage: UNK, PRN
     Route: 065
     Dates: start: 20210330
  3. NORTRIPTYLINE [Concomitant]
     Active Substance: NORTRIPTYLINE
     Indication: MIGRAINE
     Dosage: 20 MILLIGRAM, NIGHTLY
     Route: 048
     Dates: start: 2018
  4. DIOVAN HCT [Concomitant]
     Active Substance: HYDROCHLOROTHIAZIDE\VALSARTAN
     Indication: HYPERTENSION
     Dosage: 1 TAB, QD
     Route: 048
     Dates: start: 2019, end: 20210331
  5. REGLAN [Concomitant]
     Active Substance: METOCLOPRAMIDE HYDROCHLORIDE
     Indication: NAUSEA
     Dosage: 5 MILLIGRAM, TID
     Route: 048
     Dates: start: 201909
  6. HUMALOG [Concomitant]
     Active Substance: INSULIN LISPRO
     Indication: DIABETES MELLITUS
     Dosage: 100 UNIT/ML INJECTION
     Route: 058
     Dates: start: 202001
  7. PROTONIX [OMEPRAZOLE] [Concomitant]
     Active Substance: OMEPRAZOLE
     Indication: GASTROOESOPHAGEAL REFLUX DISEASE
     Dosage: 40 MILLIGRAM, QD
     Route: 048
     Dates: start: 202012
  8. LUMIGAN [Concomitant]
     Active Substance: BIMATOPROST
     Indication: BORDERLINE GLAUCOMA
     Dosage: ADMINISTER 1 DROP TO BOTH EYES NIGHTLY
     Route: 065
     Dates: start: 202101
  9. COMPAZINE [PROCHLORPERAZINE EDISYLATE] [Concomitant]
     Active Substance: PROCHLORPERAZINE EDISYLATE
     Indication: NAUSEA
     Dosage: UNK, PRN
     Route: 065
     Dates: start: 20210331
  10. PALBOCICLIB [Suspect]
     Active Substance: PALBOCICLIB
     Indication: PANCREATIC CARCINOMA
     Dosage: 125 MILLIGRAM, QD
     Route: 048
     Dates: start: 20210324, end: 20210406
  11. TYLENOL [Concomitant]
     Active Substance: ACETAMINOPHEN
     Indication: BACK PAIN
     Dosage: 2 GRAM, PRN
     Route: 048
     Dates: start: 20210310
  12. PHENERGAN [Concomitant]
     Active Substance: PROMETHAZINE HYDROCHLORIDE
     Indication: NAUSEA
     Dosage: UNK, PRN
     Route: 065
     Dates: start: 20210330
  13. SODIUM CHLORIDE. [Concomitant]
     Active Substance: SODIUM CHLORIDE
     Indication: NAUSEA
  14. ALLERTEC [CETIRIZINE] [Concomitant]
     Indication: RHINITIS ALLERGIC
     Dosage: ORAL10 MILLIGRAM, QD
     Route: 048
     Dates: start: 1990
  15. ULIXERTINIB. [Suspect]
     Active Substance: ULIXERTINIB
     Indication: PANCREATIC CARCINOMA
     Dosage: 450 MILLIGRAM, BID
     Route: 048
     Dates: start: 20210317, end: 20210406
  16. MIRALAX [Concomitant]
     Active Substance: POLYETHYLENE GLYCOL 3350
     Indication: CONSTIPATION
     Dosage: UNK, QD
     Route: 048
     Dates: start: 201910
  17. MONODOX [DOXYCYCLINE] [Concomitant]
     Indication: PROPHYLAXIS
     Dosage: 100 MILLIGRAM, BID
     Route: 048
     Dates: start: 20210317
  18. CREON [Concomitant]
     Active Substance: PANCRELIPASE AMYLASE\PANCRELIPASE LIPASE\PANCRELIPASE PROTEASE
     Indication: FLATULENCE
  19. GEMFIBROZIL. [Concomitant]
     Active Substance: GEMFIBROZIL
     Indication: BLOOD CHOLESTEROL INCREASED
     Dosage: 600 MILLIGRAM, QD
     Route: 048
     Dates: start: 2010
  20. POTASSIUM [Concomitant]
     Active Substance: POTASSIUM
     Indication: SUPPLEMENTATION THERAPY
     Dosage: 1 DOSAGE FORM, BID
     Route: 048
     Dates: start: 202001
  21. HYDROCORTISONE. [Concomitant]
     Active Substance: HYDROCORTISONE
     Indication: DERMATITIS ACNEIFORM
     Dosage: ONE APPLICATION BID
     Route: 061
     Dates: start: 20210331
  22. CREON [Concomitant]
     Active Substance: PANCRELIPASE AMYLASE\PANCRELIPASE LIPASE\PANCRELIPASE PROTEASE
     Indication: ABDOMINAL PAIN
     Dosage: UNK, TID
     Route: 048
     Dates: start: 20210331
  23. ELIQUIS [Suspect]
     Active Substance: APIXABAN
     Indication: DEEP VEIN THROMBOSIS
     Dosage: 5 MILLIGRAM, BID
     Route: 048
     Dates: start: 201908, end: 20210406
  24. LANTUS [Concomitant]
     Active Substance: INSULIN GLARGINE
     Indication: DIABETES MELLITUS
     Dosage: 100 UNIT/ML
     Route: 058
     Dates: start: 202001
  25. LYRICA [Concomitant]
     Active Substance: PREGABALIN
     Indication: BACK PAIN
     Dosage: 200 MILLIGRAM, TID
     Route: 048
     Dates: start: 202101
  26. TIZANIDINE. [Concomitant]
     Active Substance: TIZANIDINE
     Indication: BACK PAIN
     Dosage: UNK, PRN
     Route: 048
     Dates: start: 20210310, end: 20210317
  27. SODIUM CHLORIDE. [Concomitant]
     Active Substance: SODIUM CHLORIDE
     Indication: FATIGUE
     Dosage: 500 MILLILITER
     Route: 065
     Dates: start: 20210331, end: 20210331

REACTIONS (4)
  - Pulmonary embolism [Recovered/Resolved]
  - Treatment failure [Unknown]
  - Ascites [Unknown]
  - Thrombosis [Unknown]

NARRATIVE: CASE EVENT DATE: 20210406
